FAERS Safety Report 8895423 (Version 2)
Quarter: 2014Q1

REPORT INFORMATION
  Report Type: Spontaneous
  Country: JP (occurrence: JP)
  Receive Date: 20121107
  Receipt Date: 20140307
  Transmission Date: 20141002
  Serious: Yes (Death, Other)
  Sender: FDA-Public Use
  Company Number: PHHY2012JP101847

PATIENT
  Age: 63 Year
  Sex: Male

DRUGS (9)
  1. MEROPENEM [Suspect]
     Dosage: 1 G, TID
  2. PIPERACILLIN+TAZOBACTAM [Suspect]
     Indication: FEBRILE NEUTROPENIA
     Dosage: 4.5 G, TID
  3. CYTARABINE [Suspect]
     Indication: ACUTE MYELOID LEUKAEMIA
  4. DAUNORUBICIN [Suspect]
     Indication: ACUTE MYELOID LEUKAEMIA
  5. FLUCONAZOLE [Concomitant]
     Dosage: 100 MG, UNK
     Route: 048
  6. VORICONAZOLE [Concomitant]
     Dosage: 300 MG, BID
     Route: 048
  7. VORICONAZOLE [Concomitant]
     Dosage: 150 MG, QD
     Route: 048
  8. MITOXANTRONE [Concomitant]
  9. ETOPOSIDE [Concomitant]

REACTIONS (15)
  - Pneumonia bacterial [Fatal]
  - Stenotrophomonas infection [Fatal]
  - Pulmonary haemorrhage [Fatal]
  - Chest discomfort [Fatal]
  - Cough [Fatal]
  - Haemoptysis [Fatal]
  - Lung infiltration [Fatal]
  - Hypoxia [Fatal]
  - Agranulocytosis [Fatal]
  - Pyrexia [Fatal]
  - Bronchial haemorrhage [Fatal]
  - Shock haemorrhagic [Unknown]
  - Liver abscess [Unknown]
  - Haemorrhoids [Unknown]
  - Drug ineffective [Unknown]
